FAERS Safety Report 6109750-2 (Version None)
Quarter: 2009Q1

REPORT INFORMATION
  Report Type: 
  Country: None (occurrence: None)
  Receive Date: 20090310
  Receipt Date: 20080409
  Transmission Date: 20090719
  Serious: No
  Sender: FDA-Public Use
  Company Number: A0721731A

PATIENT
  Age: 65 Year

DRUGS (3)
  1. NICORETTE (MINT) [Suspect]
  2. NICORETTE (MINT) [Suspect]
  3. NICORETTE [Suspect]

REACTIONS (4)
  - INTENTIONAL DRUG MISUSE [None]
  - LOOSE TOOTH [None]
  - ORAL PAIN [None]
  - PRODUCT QUALITY ISSUE [None]
